FAERS Safety Report 15811072 (Version 1)
Quarter: 2019Q1

REPORT INFORMATION
  Report Type: Report from Study
  Country: TR (occurrence: TR)
  Receive Date: 20190111
  Receipt Date: 20190111
  Transmission Date: 20190417
  Serious: Yes (Other)
  Sender: FDA-Public Use
  Company Number: TR-SUN PHARMACEUTICAL INDUSTRIES LTD-2018RR-195788

PATIENT
  Age: 34 Year
  Sex: Female

DRUGS (3)
  1. ASPIRIN. [Suspect]
     Active Substance: ASPIRIN
     Indication: PERIPHERAL VENOUS DISEASE
     Dosage: 300 MILLIGRAM, DAILY, WEEK 0-8
     Route: 065
  2. MEDROXYPROGESTERONE ACETATE. [Suspect]
     Active Substance: MEDROXYPROGESTERONE ACETATE
     Indication: MENSTRUATION IRREGULAR
     Dosage: 5 MILLIGRAM, DAILY, ON WEEKS 4-5 AFTER LAST MENSTRUAL PERIOD
     Route: 048
  3. OXERUTIN [Suspect]
     Active Substance: TROXERUTIN
     Indication: PERIPHERAL VENOUS DISEASE
     Dosage: 500 MILLIGRAM, DAILY, WEEK 0-8
     Route: 065

REACTIONS (2)
  - Exposure during pregnancy [Unknown]
  - Abortion spontaneous [Unknown]
